FAERS Safety Report 18563055 (Version 1)
Quarter: 2020Q4

REPORT INFORMATION
  Report Type: Report from Study
  Country: None (occurrence: CA)
  Receive Date: 20201130
  Receipt Date: 20201130
  Transmission Date: 20210114
  Serious: Yes (Hospitalization, Other)
  Sender: FDA-Public Use
  Company Number: CA-ABBVIE-20K-028-3667802-00

PATIENT
  Sex: Female

DRUGS (3)
  1. HUMIRA [Suspect]
     Active Substance: ADALIMUMAB
     Route: 058
     Dates: start: 20150717, end: 20171110
  2. HUMIRA [Suspect]
     Active Substance: ADALIMUMAB
     Route: 058
  3. HUMIRA [Suspect]
     Active Substance: ADALIMUMAB
     Indication: ANKYLOSING SPONDYLITIS
     Route: 058
     Dates: start: 20080829, end: 2015

REACTIONS (9)
  - Sepsis [Unknown]
  - Ulcer haemorrhage [Recovered/Resolved]
  - Lung neoplasm malignant [Unknown]
  - Urinary tract infection [Recovered/Resolved]
  - Lung disorder [Recovered/Resolved]
  - Endometrial cancer [Recovered/Resolved]
  - Neoplasm [Unknown]
  - Lung neoplasm malignant [Recovered/Resolved]
  - Sepsis [Recovered/Resolved]

NARRATIVE: CASE EVENT DATE: 2015
